FAERS Safety Report 23889037 (Version 1)
Quarter: 2024Q2

REPORT INFORMATION
  Report Type: Report from Study
  Country: UZ (occurrence: UZ)
  Receive Date: 20240523
  Receipt Date: 20240523
  Transmission Date: 20240715
  Serious: Yes (Death)
  Sender: FDA-Public Use
  Company Number: UZ-MYLANLABS-2024M1046732

PATIENT
  Age: 81 Year
  Sex: Male

DRUGS (7)
  1. PRETOMANID [Suspect]
     Active Substance: PRETOMANID
     Indication: Pulmonary tuberculosis
     Dosage: UNK (200)
     Route: 065
     Dates: start: 20221104, end: 20230512
  2. MOXIFLOXACIN [Suspect]
     Active Substance: MOXIFLOXACIN
     Indication: Pulmonary tuberculosis
     Dosage: UNK (400)
     Route: 065
     Dates: start: 20221104, end: 20230512
  3. BEDAQUILINE [Suspect]
     Active Substance: BEDAQUILINE
     Indication: Pulmonary tuberculosis
     Dosage: UNK (400)
     Route: 065
     Dates: start: 20221104, end: 20221118
  4. BEDAQUILINE [Suspect]
     Active Substance: BEDAQUILINE
     Dosage: UNK (200)
     Route: 065
     Dates: start: 20221120, end: 20230512
  5. LINEZOLID [Suspect]
     Active Substance: LINEZOLID
     Indication: Pulmonary tuberculosis
     Dosage: UNK (600)
     Route: 065
     Dates: start: 20221104, end: 20230317
  6. LINEZOLID [Suspect]
     Active Substance: LINEZOLID
     Dosage: UNK (300)
     Route: 065
     Dates: start: 20230317, end: 20230512
  7. CLOFAZIMINE [Suspect]
     Active Substance: CLOFAZIMINE
     Indication: Pulmonary tuberculosis
     Dosage: UNK (100)
     Route: 065
     Dates: start: 20231104, end: 20231124

REACTIONS (2)
  - Cardiopulmonary failure [Fatal]
  - Hypertension [Fatal]

NARRATIVE: CASE EVENT DATE: 20240314
